FAERS Safety Report 24220824 (Version 1)
Quarter: 2024Q3

REPORT INFORMATION
  Report Type: Spontaneous
  Country: ZA (occurrence: None)
  Receive Date: 20240818
  Receipt Date: 20240818
  Transmission Date: 20241017
  Serious: Yes (Death, Other)
  Sender: ASTRAZENECA
  Company Number: 2024A185738

PATIENT
  Sex: Male

DRUGS (6)
  1. DAPAGLIFLOZIN PROPANEDIOL [Suspect]
     Active Substance: DAPAGLIFLOZIN PROPANEDIOL
     Indication: Diabetes mellitus
     Dosage: 10.0MG UNKNOWN
     Route: 048
  2. ADCO-LAMIVUDINE [Concomitant]
     Indication: Antiviral treatment
     Dosage: 150.0MG UNKNOWN
  3. ADCO-ABACAVIR [Concomitant]
     Indication: Antiviral treatment
     Dosage: 300.0MG UNKNOWN
  4. DOLUTEGRAVIR SODIUM [Concomitant]
     Active Substance: DOLUTEGRAVIR SODIUM
     Indication: Antiviral treatment
     Dosage: 50.0MG UNKNOWN
  5. AMITRIPTYLINE [Concomitant]
     Active Substance: AMITRIPTYLINE
     Indication: Depression
     Dosage: 25.0MG UNKNOWN
  6. METHYLDOPA [Concomitant]
     Active Substance: METHYLDOPA
     Indication: Hypertension
     Dosage: 250.0MG UNKNOWN

REACTIONS (1)
  - Cerebrovascular accident [Fatal]
